FAERS Safety Report 6404505-3 (Version None)
Quarter: 2009Q4

REPORT INFORMATION
  Report Type: 
  Country: None (occurrence: None)
  Receive Date: 20091016
  Receipt Date: 20091006
  Transmission Date: 20100525
  Serious: Yes (Hospitalization, Other)
  Sender: FDA-Public Use
  Company Number: US-JNJFOC-20090801569

PATIENT
  Sex: Male
  Weight: 85.28 kg

DRUGS (17)
  1. REMICADE [Suspect]
     Indication: CROHN'S DISEASE
     Route: 042
  2. REMICADE [Suspect]
     Indication: COLITIS ULCERATIVE
     Dosage: ALSO REPORTED AS 5-10 MG/KG OR 900 MG
     Route: 042
  3. CIMZIA [Suspect]
     Indication: COLITIS ULCERATIVE
  4. HUMIRA [Suspect]
     Dosage: 160 MG ONCE, 80 MG ONCE THEN 40 MG.
     Route: 050
  5. HUMIRA [Suspect]
     Indication: CROHN'S DISEASE
     Dosage: 160 MG ONCE, 80 MG ONCE THEN 40 MG.
     Route: 050
  6. HUMIRA [Suspect]
     Indication: COLITIS ULCERATIVE
     Dosage: 160 MG ONCE, 80 MG ONCE THEN 40 MG.
     Route: 050
  7. ERGOCALCIFEROL [Concomitant]
  8. PREDNISONE [Concomitant]
     Indication: COLITIS ULCERATIVE
     Dosage: 10 MG TO 50 MG DAILY
     Route: 048
  9. MESALAZINE [Concomitant]
     Indication: COLITIS ULCERATIVE
  10. AZATHIOPRINE [Concomitant]
  11. AZATHIOPRINE [Concomitant]
     Indication: COLITIS ULCERATIVE
  12. METRONIDAZOLE [Concomitant]
  13. CALCIUM WITH MAGNESIUM [Concomitant]
  14. MULTIPLE VITAMINS [Concomitant]
  15. PARACETAMOL [Concomitant]
  16. MONTELUKAST [Concomitant]
  17. FEXOFENADINE [Concomitant]

REACTIONS (7)
  - APPENDIX DISORDER [None]
  - COLONIC POLYP [None]
  - ERYTHEMA NODOSUM [None]
  - INFLAMMATORY BOWEL DISEASE [None]
  - METASTATIC NEOPLASM [None]
  - NEPHROLITHIASIS [None]
  - THROMBOSIS [None]
